FAERS Safety Report 15898189 (Version 1)
Quarter: 2019Q1

REPORT INFORMATION
  Report Type: Spontaneous
  Country: FR (occurrence: FR)
  Receive Date: 20190201
  Receipt Date: 20190201
  Transmission Date: 20190417
  Serious: Yes (Hospitalization, Other)
  Sender: FDA-Public Use
  Company Number: FR-AUROBINDO-AUR-APL-2019-004003

PATIENT
  Age: 15 Year
  Sex: Female
  Weight: 50 kg

DRUGS (1)
  1. PARACETAMOL [Suspect]
     Active Substance: ACETAMINOPHEN
     Indication: PRODUCT USED FOR UNKNOWN INDICATION
     Dosage: UNK
     Route: 048
     Dates: start: 20181115, end: 20181115

REACTIONS (4)
  - Poisoning deliberate [Recovered/Resolved]
  - Hypoprothrombinaemia [Recovered/Resolved]
  - Headache [Recovered/Resolved]
  - Transaminases [Recovering/Resolving]

NARRATIVE: CASE EVENT DATE: 20181115
